FAERS Safety Report 19170413 (Version 1)
Quarter: 2021Q2

REPORT INFORMATION
  Report Type: Spontaneous
  Country: DE (occurrence: DE)
  Receive Date: 20210422
  Receipt Date: 20210422
  Transmission Date: 20210717
  Serious: Yes (Hospitalization)
  Sender: FDA-Public Use
  Company Number: DE-PURDUE-USA-2021-0248705

PATIENT
  Sex: Female

DRUGS (2)
  1. OXYGESIC [Suspect]
     Active Substance: OXYCODONE
     Indication: PRODUCT USED FOR UNKNOWN INDICATION
     Dosage: 80 MG, DAILY
     Route: 048
     Dates: start: 20210408
  2. OXYGESIC [Suspect]
     Active Substance: OXYCODONE
     Dosage: 120 MG, DAILY (STRENGHT 20MG)
     Route: 048
     Dates: start: 2016

REACTIONS (1)
  - Dupuytren^s contracture operation [Recovered/Resolved]

NARRATIVE: CASE EVENT DATE: 202009
